FAERS Safety Report 25105431 (Version 1)
Quarter: 2025Q1

REPORT INFORMATION
  Report Type: Spontaneous
  Country: US (occurrence: US)
  Receive Date: 20250321
  Receipt Date: 20250321
  Transmission Date: 20250408
  Serious: Yes (Other)
  Sender: SANDOZ
  Company Number: US-SANDOZ-SDZ2024US107846

PATIENT
  Sex: Male

DRUGS (1)
  1. ZOFRAN [Suspect]
     Active Substance: ONDANSETRON HYDROCHLORIDE
     Indication: Product used for unknown indication
     Route: 065
     Dates: start: 20231208

REACTIONS (16)
  - Neoplasm malignant [Unknown]
  - Prostatic specific antigen increased [Unknown]
  - Mean cell haemoglobin concentration decreased [Unknown]
  - Immature granulocyte count increased [Unknown]
  - Blood alkaline phosphatase increased [Unknown]
  - Red blood cell count decreased [Unknown]
  - Haemoglobin decreased [Unknown]
  - Haematocrit decreased [Unknown]
  - Red cell distribution width increased [Unknown]
  - Monocyte count increased [Unknown]
  - Lymphocyte count decreased [Unknown]
  - Serum ferritin increased [Unknown]
  - Vitamin B12 increased [Unknown]
  - Blood testosterone decreased [Unknown]
  - Blood chloride increased [Unknown]
  - Blood glucose increased [Unknown]
